FAERS Safety Report 9040558 (Version 1)
Quarter: 2013Q1

REPORT INFORMATION
  Report Type: Report from Study
  Country: US (occurrence: US)
  Receive Date: 20130129
  Receipt Date: 20130129
  Transmission Date: 20140127
  Serious: No
  Sender: FDA-Public Use
  Company Number: US-ABBOTT-12P-163-0893616-00

PATIENT
  Age: 30 Year
  Sex: Male

DRUGS (5)
  1. HUMIRA 40 MG/0.8 ML PEN [Suspect]
     Indication: PSORIASIS
     Dates: start: 20111029
  2. ZOLOFT [Concomitant]
     Indication: ANXIETY
  3. LEVOTHYROXINE [Concomitant]
     Indication: BLOOD THYROID STIMULATING HORMONE DECREASED
  4. DEXILANT DR [Concomitant]
     Indication: DYSPEPSIA
  5. KLONOPIN [Concomitant]
     Indication: ANXIETY
     Dosage: TWICE DAILY AS NEEDED

REACTIONS (1)
  - Injection site pain [Recovered/Resolved]
